FAERS Safety Report 5075944-0 (Version None)
Quarter: 2006Q3

REPORT INFORMATION
  Report Type: 
  Country: None (occurrence: None)
  Receive Date: 20060714
  Receipt Date: 20060504
  Transmission Date: 20061208
  Serious: No
  Sender: FDA-Public Use
  Company Number: 2006SP001940

PATIENT
  Age: 40 Year
  Sex: Male
  Weight: 94.3482 kg

DRUGS (7)
  1. LUNESTA [Suspect]
     Indication: INSOMNIA
     Dosage: SEE IMAGE
     Route: 048
     Dates: start: 20060503, end: 20060503
  2. LUNESTA [Suspect]
     Indication: INSOMNIA
     Dosage: SEE IMAGE
     Route: 048
     Dates: start: 20050401
  3. BENAZEPRIL HYDROCHLORIDE [Concomitant]
  4. PAXIL [Concomitant]
  5. XANAX [Concomitant]
  6. SPORANOX [Concomitant]
  7. DILTIAZEM HCL [Concomitant]

REACTIONS (2)
  - AMNESIA [None]
  - PARASOMNIA [None]
